FAERS Safety Report 8887513 (Version 2)
Quarter: 2013Q2

REPORT INFORMATION
  Report Type: Spontaneous
  Country: CZ (occurrence: None)
  Receive Date: 20121031
  Receipt Date: 20130603
  Transmission Date: 20140414
  Serious: Yes (Other)
  Sender: FDA-Public Use
  Company Number: CZ-025166

PATIENT
  Sex: 0

DRUGS (3)
  1. BUSULFAN [Suspect]
     Indication: STEM CELL TRANSPLANT
     Route: 048
  2. FLUDARABINE [Suspect]
     Indication: STEM CELL TRANSPLANT
     Dosage: 30 MG/M2/DAY ON DAYS -10 TO -5 ON DAYS -10  TO -5 (30 MG/M2, 1 IN 1 DAYS), INTRAVENOUS (NOT OTHERWISE SPECIFIED)
     Route: 042
  3. ANTITHYMOCYTE GLOBULIN [Suspect]
     Indication: STEM CELL TRANSPLANT
     Dosage: 10 MG/KG (10 MG/KG, 1 IN 1 DAYS

REACTIONS (1)
  - Cardiotoxicity [None]
